FAERS Safety Report 24285978 (Version 1)
Quarter: 2024Q3

REPORT INFORMATION
  Report Type: Spontaneous
  Country: AU (occurrence: AU)
  Receive Date: 20240905
  Receipt Date: 20240905
  Transmission Date: 20241016
  Serious: Yes (Other)
  Sender: RECKITT BENCKISER
  Company Number: AU-INDIVIOR US-INDV-156306-2024

PATIENT

DRUGS (6)
  1. BUPRENORPHINE [Suspect]
     Active Substance: BUPRENORPHINE
     Indication: Product used for unknown indication
     Dosage: UNK
     Route: 065
  2. ARIPIPRAZOLE [Suspect]
     Active Substance: ARIPIPRAZOLE
     Indication: Product used for unknown indication
     Dosage: UNK
     Route: 065
  3. CLOZARIL [Suspect]
     Active Substance: CLOZAPINE
     Indication: Product used for unknown indication
     Dosage: UNK
     Route: 065
  4. ABILIFY [Concomitant]
     Active Substance: ARIPIPRAZOLE
     Indication: Product used for unknown indication
     Dosage: UNK
     Route: 065
  5. HALOPERIDOL [Concomitant]
     Active Substance: HALOPERIDOL
     Indication: Product used for unknown indication
     Dosage: UNK
     Route: 065
  6. OLANZAPINE [Concomitant]
     Active Substance: OLANZAPINE
     Indication: Product used for unknown indication
     Dosage: UNK
     Route: 065

REACTIONS (19)
  - Myocarditis [Unknown]
  - Anion gap decreased [Unknown]
  - Antipsychotic drug level increased [Unknown]
  - Blood albumin decreased [Unknown]
  - Blood osmolarity increased [Unknown]
  - Blood phosphorus decreased [Unknown]
  - Blood sodium increased [Unknown]
  - Bone disorder [Unknown]
  - C-reactive protein increased [Unknown]
  - Delusion [Unknown]
  - Mean cell haemoglobin decreased [Unknown]
  - Protein urine present [Unknown]
  - Sinus tachycardia [Unknown]
  - Troponin C increased [Unknown]
  - Troponin increased [Unknown]
  - Chest discomfort [Unknown]
  - Cough [Unknown]
  - Fatigue [Unknown]
  - Mental impairment [Unknown]
